FAERS Safety Report 7759158-9 (Version None)
Quarter: 2011Q3

REPORT INFORMATION
  Report Type: 
  Country: None (occurrence: None)
  Receive Date: 20110919
  Receipt Date: 20110916
  Transmission Date: 20111222
  Serious: Yes (Death, Hospitalization)
  Sender: FDA-Public Use
  Company Number: PHHY2011CA82432

PATIENT
  Sex: Female

DRUGS (7)
  1. ZOLEDRONOC ACID [Suspect]
     Indication: OSTEOPOROSIS
     Dosage: UNK UKN, UNK
     Route: 042
     Dates: start: 20101213
  2. RAMIPRIL [Concomitant]
     Dosage: UNK UKN, UNK
  3. VITAMIN D [Concomitant]
     Dosage: UNK UKN, UNK
  4. TYLENOL-500 [Concomitant]
     Dosage: UNK UKN, UNK
  5. CALCIUM CARBONATE [Concomitant]
     Dosage: UNK UKN, UNK
  6. HYDROMORPH [Concomitant]
     Dosage: UNK UKN, UNK
  7. RABEPRAZOLE SODIUM [Concomitant]
     Dosage: UNK UKN, UNK

REACTIONS (3)
  - VOMITING [None]
  - GASTROINTESTINAL HAEMORRHAGE [None]
  - NAUSEA [None]
